FAERS Safety Report 23373106 (Version 1)
Quarter: 2024Q1

REPORT INFORMATION
  Report Type: Spontaneous
  Country: CH (occurrence: CH)
  Receive Date: 20240105
  Receipt Date: 20240105
  Transmission Date: 20240409
  Serious: Yes (Other)
  Sender: FDA-Public Use
  Company Number: CH-009507513-2401CHE001068

PATIENT
  Age: 46 Year
  Sex: Female

DRUGS (5)
  1. ISENTRESS [Suspect]
     Active Substance: RALTEGRAVIR POTASSIUM
     Indication: HIV infection
     Dosage: UNK
     Route: 048
     Dates: start: 200906, end: 200910
  2. ISENTRESS [Suspect]
     Active Substance: RALTEGRAVIR POTASSIUM
     Dosage: UNK
     Route: 048
     Dates: start: 200910, end: 20100102
  3. ISENTRESS [Suspect]
     Active Substance: RALTEGRAVIR POTASSIUM
     Dosage: UNK
     Route: 048
     Dates: start: 20100102, end: 201807
  4. DORAVIRINE [Suspect]
     Active Substance: DORAVIRINE
     Indication: HIV infection
     Dosage: 100 MILLIGRAM
     Route: 048
  5. EFAVIRENZ [Suspect]
     Active Substance: EFAVIRENZ
     Indication: HIV infection
     Dosage: UNK
     Route: 048
     Dates: start: 200109, end: 200212

REACTIONS (14)
  - Lipodystrophy acquired [Unknown]
  - Drug reaction with eosinophilia and systemic symptoms [Unknown]
  - Acute psychosis [Unknown]
  - Pneumocystis jirovecii infection [Unknown]
  - Transaminases increased [Unknown]
  - Therapeutic product effect incomplete [Unknown]
  - Metabolic syndrome [Unknown]
  - Hypertension [Unknown]
  - Malnutrition [Unknown]
  - Viral load abnormal [Unknown]
  - CD4 lymphocytes abnormal [Unknown]
  - Treatment noncompliance [Unknown]
  - Product use issue [Unknown]
  - Therapy interrupted [Unknown]

NARRATIVE: CASE EVENT DATE: 20030101
